FAERS Safety Report 10061204 (Version 2)
Quarter: 2014Q2

REPORT INFORMATION
  Report Type: Spontaneous
  Country: GR (occurrence: GR)
  Receive Date: 20140407
  Receipt Date: 20140407
  Transmission Date: 20141212
  Serious: Yes (Other)
  Sender: FDA-Public Use
  Company Number: GR-ROCHE-302965

PATIENT
  Age: 29 Year
  Sex: Female

DRUGS (1)
  1. INTERFERON ALFA-2A [Suspect]
     Indication: HEPATITIS C
     Dosage: DOSE REPORTED AS 3 MILLION UNITS.
     Route: 065

REACTIONS (1)
  - Colitis ulcerative [Recovering/Resolving]
